FAERS Safety Report 17802831 (Version 1)
Quarter: 2020Q2

REPORT INFORMATION
  Report Type: Spontaneous
  Country: US (occurrence: US)
  Receive Date: 20200519
  Receipt Date: 20200519
  Transmission Date: 20200714
  Serious: Yes (Hospitalization)
  Sender: FDA-Public Use
  Company Number: None

PATIENT
  Age: 12 Year
  Sex: Male

DRUGS (9)
  1. FOLIC ACID. [Concomitant]
     Active Substance: FOLIC ACID
  2. METRONIDAZOL [Concomitant]
     Active Substance: METRONIDAZOLE
  3. HUMIRA [Suspect]
     Active Substance: ADALIMUMAB
     Indication: CROHN^S DISEASE
     Dosage: ?          OTHER FREQUENCY:EVERY 2 WEEKS;??
     Route: 058
     Dates: start: 20170622
  4. PANTOPRAZOLE [Concomitant]
     Active Substance: PANTOPRAZOLE
  5. TREXALL [Concomitant]
     Active Substance: METHOTREXATE SODIUM
  6. METHOTREXATE. [Concomitant]
     Active Substance: METHOTREXATE
  7. MULTIVITAMIN [Concomitant]
     Active Substance: VITAMINS
  8. PREDNISONE. [Concomitant]
     Active Substance: PREDNISONE
  9. IRON [Concomitant]
     Active Substance: IRON

REACTIONS (3)
  - Crohn^s disease [None]
  - Enteritis [None]
  - Off label use [None]

NARRATIVE: CASE EVENT DATE: 20200513
